FAERS Safety Report 9557021 (Version 1)
Quarter: 2013Q3

REPORT INFORMATION
  Report Type: Spontaneous
  Country: US (occurrence: US)
  Receive Date: 20130926
  Receipt Date: 20130926
  Transmission Date: 20140515
  Serious: No
  Sender: FDA-Public Use
  Company Number: US-TARO-2013P1000588

PATIENT
  Age: 38 Year
  Sex: Female

DRUGS (3)
  1. OVIDE TOPICAL LOTION 0.5% [Suspect]
     Indication: LICE INFESTATION
     Dates: start: 201212, end: 201212
  2. NIX [Suspect]
     Indication: LICE INFESTATION
     Dates: start: 201212, end: 201212
  3. UNKNOWN STORE BRAND PERMETHRIN [Suspect]
     Indication: LICE INFESTATION
     Dates: start: 201212, end: 201212

REACTIONS (1)
  - Drug ineffective [Unknown]
